FAERS Safety Report 9910316 (Version 6)
Quarter: 2014Q2

REPORT INFORMATION
  Report Type: Spontaneous
  Country: US (occurrence: US)
  Receive Date: 20140219
  Receipt Date: 20140522
  Transmission Date: 20141212
  Serious: Yes (Disabling, Other)
  Sender: FDA-Public Use
  Company Number: US-009507513-1402USA008633

PATIENT
  Sex: Male
  Weight: 90.7 kg

DRUGS (5)
  1. JANUVIA [Suspect]
     Dosage: 50 MG, BID
     Route: 048
     Dates: start: 200902, end: 201011
  2. JANUVIA [Suspect]
     Dosage: UNK UNK, BID
     Route: 048
     Dates: start: 201201, end: 201303
  3. JANUMET [Suspect]
     Dosage: 50 MG/1000 MG, BID
     Route: 048
     Dates: start: 20080902, end: 201303
  4. BYETTA [Suspect]
     Dosage: 2 DF, BID
     Dates: start: 2006, end: 20080902
  5. COUMADIN [Concomitant]
     Indication: ARRHYTHMIA
     Dosage: UNK
     Dates: start: 2007

REACTIONS (35)
  - Pancreatic carcinoma metastatic [Unknown]
  - Pancreatectomy [Unknown]
  - Splenectomy [Unknown]
  - Convulsion [Unknown]
  - Surgery [Unknown]
  - Pancreatitis chronic [Not Recovered/Not Resolved]
  - Appendicectomy [Unknown]
  - Essential hypertension [Unknown]
  - Proteinuria [Unknown]
  - Sleep apnoea syndrome [Unknown]
  - Respiratory disorder [Recovering/Resolving]
  - Coagulation factor deficiency [Unknown]
  - Hypercholesterolaemia [Unknown]
  - Sinus arrhythmia [Unknown]
  - Mitral valve disease [Unknown]
  - Oedema [Unknown]
  - Electrocardiogram abnormal [Unknown]
  - Cardiac stress test abnormal [Unknown]
  - Nephropathy [Unknown]
  - Left ventricular hypertrophy [Unknown]
  - Mitral valve incompetence [Unknown]
  - Aortic arteriosclerosis [Unknown]
  - Tricuspid valve incompetence [Unknown]
  - Sick sinus syndrome [Unknown]
  - Diverticulitis [Unknown]
  - Hernia repair [Unknown]
  - Oxygen saturation decreased [Recovered/Resolved]
  - Endocrine neoplasm [Unknown]
  - Scoliosis [Unknown]
  - Hypothyroidism [Unknown]
  - Diabetic neuropathy [Unknown]
  - Cardiac murmur [Unknown]
  - Muscle spasms [Unknown]
  - Dizziness [Unknown]
  - Constipation [Unknown]
